FAERS Safety Report 6438791-0 (Version None)
Quarter: 2009Q4

REPORT INFORMATION
  Report Type: 
  Country: None (occurrence: None)
  Receive Date: 20091113
  Receipt Date: 20091103
  Transmission Date: 20100525
  Serious: Yes (Other)
  Sender: FDA-Public Use
  Company Number: AU-JNJFOC-20091101062

PATIENT
  Age: 69 Year
  Sex: Male

DRUGS (15)
  1. PARACETAMOL [Suspect]
  2. PARACETAMOL [Suspect]
     Indication: DRUG USE FOR UNKNOWN INDICATION
  3. SIMAVASTATIN [Suspect]
     Indication: DRUG USE FOR UNKNOWN INDICATION
  4. DIAZEPAM [Suspect]
     Indication: DRUG USE FOR UNKNOWN INDICATION
  5. BACLOFEN [Suspect]
     Indication: DRUG USE FOR UNKNOWN INDICATION
  6. FUROSEMIDE [Suspect]
     Indication: DRUG USE FOR UNKNOWN INDICATION
  7. ASPIRIN [Concomitant]
     Dosage: COMMENCED ON THE SECOND POSTOPERATIVE DAY
  8. ASPIRIN [Concomitant]
     Indication: ANTIPLATELET THERAPY
     Dosage: CEASED A WEEK BEFORE SURGERY
  9. NSAIDS [Concomitant]
  10. ANESTHESIA [Concomitant]
  11. CRYOPRECIPITATED AHF [Concomitant]
  12. HEPARIN [Concomitant]
     Dosage: COMMENCED ON FIRST POSTOPERATIVE DAY
  13. PROTAMINE SULFATE [Concomitant]
  14. TRASYLOL [Concomitant]
     Dosage: 2 MILLION UNITS INITIALLY, FOLLOWED BY 0.5 MILLION UNITS HOURLY DURING BYPASS TIME
  15. RED BLOOD CELLS [Concomitant]

REACTIONS (3)
  - ABDOMINAL PAIN [None]
  - HEPATIC ENZYME INCREASED [None]
  - PYREXIA [None]
